FAERS Safety Report 9181522 (Version 1)
Quarter: 2013Q1

REPORT INFORMATION
  Report Type: Spontaneous
  Country: FR (occurrence: FR)
  Receive Date: 20130322
  Receipt Date: 20130322
  Transmission Date: 20140127
  Serious: Yes (Hospitalization)
  Sender: FDA-Public Use
  Company Number: FR-ELI_LILLY_AND_COMPANY-FR201303004615

PATIENT
  Age: 70 Year
  Sex: Male

DRUGS (5)
  1. CIALIS [Suspect]
     Indication: BENIGN PROSTATIC HYPERPLASIA
     Dosage: 5 MG, UNKNOWN
     Route: 048
     Dates: start: 20130119, end: 20130124
  2. OMEXEL [Concomitant]
     Indication: BENIGN PROSTATIC HYPERPLASIA
     Dosage: 1 DF, UNKNOWN
     Dates: end: 20130118
  3. AVODART [Concomitant]
     Indication: BENIGN PROSTATIC HYPERPLASIA
     Dosage: 1 DF, UNKNOWN
     Dates: end: 20130118
  4. PARIET [Concomitant]
     Dosage: 1 DF, UNKNOWN
  5. STATIN                             /00084401/ [Concomitant]
     Dosage: 1 DF, UNKNOWN

REACTIONS (3)
  - Spinal pain [Recovered/Resolved]
  - Myalgia [Recovered/Resolved]
  - Headache [Recovered/Resolved]
